FAERS Safety Report 24562025 (Version 2)
Quarter: 2024Q4

REPORT INFORMATION
  Report Type: Report from Study
  Country: PR (occurrence: PR)
  Receive Date: 20241029
  Receipt Date: 20241114
  Transmission Date: 20250114
  Serious: No
  Sender: DECIPHERA PHARMACEUTICALS
  Company Number: PR-DECIPHERA PHARMACEUTICALS LLC-2024PR000880

PATIENT
  Age: 86 Year
  Sex: Male

DRUGS (1)
  1. QINLOCK [Suspect]
     Active Substance: RIPRETINIB
     Indication: Gastrointestinal stromal tumour
     Dosage: 150 MILLIGRAM, QD
     Route: 048
     Dates: start: 20240525

REACTIONS (2)
  - Hypersensitivity [Not Recovered/Not Resolved]
  - Tri-iodothyronine increased [Unknown]

NARRATIVE: CASE EVENT DATE: 20240101
